FAERS Safety Report 19445206 (Version 1)
Quarter: 2021Q2

REPORT INFORMATION
  Report Type: Spontaneous
  Country: US (occurrence: US)
  Receive Date: 20210622
  Receipt Date: 20210622
  Transmission Date: 20210717
  Serious: No
  Sender: FDA-Public Use
  Company Number: US-SA-2021SA198977

PATIENT
  Sex: Female

DRUGS (4)
  1. CYCLOSPORINE. [Concomitant]
     Active Substance: CYCLOSPORINE
     Indication: ALOPECIA TOTALIS
     Dosage: 1.5 MG/KG
  2. DUPIXENT [Suspect]
     Active Substance: DUPILUMAB
     Indication: ALOPECIA TOTALIS
  3. PREDNISOLONE. [Concomitant]
     Active Substance: PREDNISOLONE
     Dosage: 30 MG, QD
  4. PREDNISOLONE. [Concomitant]
     Active Substance: PREDNISOLONE
     Indication: ALOPECIA TOTALIS
     Dosage: 40 MG, QD

REACTIONS (1)
  - Off label use [Unknown]
